FAERS Safety Report 9796558 (Version 4)
Quarter: 2014Q2

REPORT INFORMATION
  Report Type: Spontaneous
  Country: US (occurrence: US)
  Receive Date: 20140103
  Receipt Date: 20140509
  Transmission Date: 20141212
  Serious: Yes (Death, Hospitalization)
  Sender: FDA-Public Use
  Company Number: US-JNJFOC-20140100897

PATIENT
  Age: 76 Year
  Sex: Male
  Weight: 85.3 kg

DRUGS (18)
  1. IMBRUVICA [Suspect]
     Indication: CHRONIC LYMPHOCYTIC LEUKAEMIA
     Dosage: REGIMEN AS REPORTED: START WITH 140 MG CAP DAILY AND INCREASE BY 1 CAP UNTIL 3 CAPS (420 MG)/DAY.
     Route: 048
     Dates: start: 20131221, end: 20131225
  2. SIMVASTATIN [Concomitant]
     Indication: BLOOD CHOLESTEROL INCREASED
  3. TRICOR [Concomitant]
     Indication: BLOOD TRIGLYCERIDES ABNORMAL
  4. PRILOSEC [Concomitant]
  5. DAPSONE [Concomitant]
  6. COLACE [Concomitant]
  7. SILODOSIN [Concomitant]
     Indication: RENAL DISORDER
  8. TEMAZEPAM [Concomitant]
     Indication: SLEEP DISORDER
  9. LEXAPRO [Concomitant]
     Indication: DEPRESSION
     Dosage: Q PM
  10. VALTREX [Concomitant]
     Indication: PROPHYLAXIS
  11. VIT D [Concomitant]
     Indication: SUPPLEMENTATION THERAPY
  12. MVI [Concomitant]
     Indication: SUPPLEMENTATION THERAPY
  13. TYLENOL [Concomitant]
  14. MORPHINE [Concomitant]
     Indication: PAIN
  15. IVIG [Concomitant]
     Indication: HYPOGAMMAGLOBULINAEMIA
  16. ALLOPURINOL [Concomitant]
     Indication: GOUT
  17. TAMIFLU [Concomitant]
     Dates: start: 201312
  18. AVELOX [Concomitant]
     Dates: start: 201312

REACTIONS (2)
  - Zygomycosis [Fatal]
  - Febrile neutropenia [Not Recovered/Not Resolved]
